FAERS Safety Report 8055212-5 (Version None)
Quarter: 2011Q4

REPORT INFORMATION
  Report Type: 
  Country: None (occurrence: None)
  Receive Date: 20111216
  Receipt Date: 20110812
  Transmission Date: 20120403
  Serious: Yes (Other)
  Sender: FDA-Public Use
  Company Number: 296409USA

PATIENT
  Age: 20 Year
  Sex: Female
  Weight: 53.978 kg

DRUGS (1)
  1. PARAGARD T 380A [Suspect]
     Indication: CONTRACEPTION
     Dosage: I.U.
     Dates: start: 20110708, end: 20110708

REACTIONS (5)
  - LOSS OF CONSCIOUSNESS [None]
  - HYPERVENTILATION [None]
  - SYNCOPE [None]
  - PELVIC PAIN [None]
  - VAGINAL HAEMORRHAGE [None]
